FAERS Safety Report 15803139 (Version 1)
Quarter: 2019Q1

REPORT INFORMATION
  Report Type: Spontaneous
  Country: ES (occurrence: ES)
  Receive Date: 20190109
  Receipt Date: 20190109
  Transmission Date: 20190417
  Serious: Yes (Hospitalization)
  Sender: FDA-Public Use
  Company Number: ES-EISAI MEDICAL RESEARCH-EC-2019-050113

PATIENT
  Age: 88 Year
  Sex: Female
  Weight: 86 kg

DRUGS (8)
  1. SERACTIL [Interacting]
     Active Substance: DEXIBUPROFEN
     Indication: ARTHRITIS
     Route: 048
     Dates: start: 20180821, end: 20181215
  2. IMUREL [Concomitant]
     Active Substance: AZATHIOPRINE SODIUM
     Indication: ARTHRITIS
     Dosage: UNKNOWN
     Route: 048
     Dates: start: 2012
  3. LOSARTAN. [Concomitant]
     Active Substance: LOSARTAN
     Indication: HYPERTENSION
     Dosage: UNKNOWN
     Route: 048
     Dates: start: 20180903, end: 20181215
  4. ARICEPT [Suspect]
     Active Substance: DONEPEZIL HYDROCHLORIDE
     Indication: DEMENTIA
     Route: 048
     Dates: start: 20161123, end: 20181215
  5. ATORVASTATINA CINFA [Concomitant]
     Active Substance: ATORVASTATIN CALCIUM
     Indication: BLOOD CHOLESTEROL INCREASED
     Route: 048
     Dates: start: 20151113, end: 20181215
  6. FUROSEMIDA CINFA [Concomitant]
     Active Substance: FUROSEMIDE
     Indication: HYPERTENSION
     Dosage: UNKNOWN
     Route: 048
     Dates: start: 20150610
  7. ADIRO [Interacting]
     Active Substance: ASPIRIN
     Indication: PRODUCT USED FOR UNKNOWN INDICATION
     Route: 048
     Dates: start: 20151113, end: 20181215
  8. ESCITALOPRAM NORMON [Concomitant]
     Indication: DEPRESSION
     Route: 048
     Dates: start: 20150610

REACTIONS (4)
  - Tremor [Recovered/Resolved]
  - Drug interaction [Recovered/Resolved with Sequelae]
  - Haematochezia [Recovered/Resolved with Sequelae]
  - Dizziness [Recovered/Resolved]

NARRATIVE: CASE EVENT DATE: 201811
